FAERS Safety Report 6211947-8 (Version None)
Quarter: 2009Q2

REPORT INFORMATION
  Report Type: 
  Country: None (occurrence: None)
  Receive Date: 20090602
  Receipt Date: 20090524
  Transmission Date: 20091009
  Serious: Yes (Other)
  Sender: FDA-Public Use
  Company Number: BR-AVENTIS-200915419GDDC

PATIENT
  Age: 31 Year
  Sex: Male
  Weight: 72 kg

DRUGS (6)
  1. LANTUS [Suspect]
     Route: 058
     Dates: end: 20090516
  2. LANTUS [Suspect]
     Route: 058
     Dates: start: 20090517
  3. OPTIPEN (INSULIN PUMP) [Suspect]
  4. PURAN T4 [Concomitant]
     Indication: THYROID DISORDER
     Dosage: DOSE: FASTING
     Route: 048
     Dates: start: 20050101
  5. HUMALOG [Concomitant]
     Route: 058
     Dates: start: 20030101
  6. HUMALOG [Concomitant]
     Route: 058
     Dates: start: 20030101

REACTIONS (6)
  - COLD SWEAT [None]
  - FALL [None]
  - HEMIPLEGIA [None]
  - HYPOGLYCAEMIA [None]
  - MUSCLE SPASMS [None]
  - TREMOR [None]
